FAERS Safety Report 6650344-8 (Version None)
Quarter: 2010Q1

REPORT INFORMATION
  Report Type: 
  Country: None (occurrence: None)
  Receive Date: 20100325
  Receipt Date: 20100325
  Transmission Date: 20100710
  Serious: Yes (Hospitalization)
  Sender: FDA-Public Use
  Company Number: PHHO2007AR08296

PATIENT
  Sex: Female
  Weight: 43 kg

DRUGS (6)
  1. ACLASTA/ZOLEDRONATE T29581+A+SOLINJ [Suspect]
     Indication: OSTEOPOROSIS POSTMENOPAUSAL
     Dosage: 5 MG ONCE A YEAR
     Route: 042
     Dates: start: 20060316
  2. CALCIUM [Concomitant]
     Indication: OSTEOPOROSIS POSTMENOPAUSAL
  3. VITAMIN D [Concomitant]
     Indication: OSTEOPOROSIS POSTMENOPAUSAL
  4. TAURAL [Concomitant]
     Dosage: 150 MG, QD
  5. LOTRIAL [Concomitant]
     Dosage: 5 MG, Q12H
  6. HEPARIN [Concomitant]
     Dosage: 500 IU, Q12H

REACTIONS (5)
  - FEELING ABNORMAL [None]
  - HAEMATOCRIT DECREASED [None]
  - PARESIS [None]
  - SUBDURAL HAEMATOMA [None]
  - SUBDURAL HAEMATOMA EVACUATION [None]
